FAERS Safety Report 9105393 (Version 1)
Quarter: 2013Q1

REPORT INFORMATION
  Report Type: Spontaneous
  Country: BR (occurrence: BR)
  Receive Date: 20130220
  Receipt Date: 20130220
  Transmission Date: 20140127
  Serious: Yes (Hospitalization)
  Sender: FDA-Public Use
  Company Number: BR-009507513-1302BRA009180

PATIENT
  Age: 53 Year
  Sex: Female
  Weight: 76 kg

DRUGS (12)
  1. METICORTEN [Suspect]
     Indication: RHEUMATIC DISORDER
     Dosage: 5 MG, QD
     Route: 048
     Dates: start: 201209
  2. METICORTEN [Suspect]
     Dosage: 2.5 MG, QD
     Route: 048
  3. AMITRIPTYLINE HYDROCHLORIDE [Suspect]
     Indication: ARTHRALGIA
     Dosage: UNK, QAM
     Route: 048
     Dates: start: 201209
  4. AMITRIPTYLINE HYDROCHLORIDE [Suspect]
     Dosage: UNK, QPM
     Route: 048
     Dates: start: 201209
  5. RIVOTRIL [Concomitant]
     Indication: DEPRESSION
     Dosage: HALF TABLET, PRN
     Route: 048
     Dates: start: 200502
  6. DEPURA [Concomitant]
     Indication: IMMUNE SYSTEM DISORDER
     Dosage: 14 DROPS, UNKNOWN
     Route: 048
     Dates: start: 201209
  7. CAL D (CHOLECALCIFEROL) [Concomitant]
     Indication: OSTEOPOROSIS
     Dosage: 1 DF, UNKNOWN
     Route: 048
     Dates: start: 201209
  8. CONDROFLEX [Concomitant]
     Indication: ARTHROPATHY
     Dosage: UNK, UNKNOWN
     Route: 048
     Dates: start: 201209
  9. ARTRODAR [Concomitant]
     Dosage: 1 DF, UNKNOWN
     Route: 048
     Dates: start: 201209
  10. ABLOK PLUS [Concomitant]
     Indication: HYPERTENSION
     Dosage: UNK, UNKNOWN
     Route: 048
  11. OMEPRAZOLE [Concomitant]
     Indication: GASTRITIS
     Dosage: UNK, UNKNOWN
     Route: 048
     Dates: start: 2008
  12. LEVOTHYROXINE SODIUM [Concomitant]
     Indication: HYPOTHYROIDISM
     Dosage: UNK, UNKNOWN
     Route: 048
     Dates: start: 2006

REACTIONS (8)
  - Blood pressure increased [Recovered/Resolved]
  - Hypoaesthesia [Not Recovered/Not Resolved]
  - Hypoaesthesia [Not Recovered/Not Resolved]
  - Neck pain [Not Recovered/Not Resolved]
  - Local swelling [Not Recovered/Not Resolved]
  - Wrong technique in drug usage process [Unknown]
  - Drug administration error [Unknown]
  - Off label use [Unknown]
